FAERS Safety Report 25416085 (Version 1)
Quarter: 2025Q2

REPORT INFORMATION
  Report Type: Report from Study
  Country: CN (occurrence: CN)
  Receive Date: 20250610
  Receipt Date: 20250610
  Transmission Date: 20250716
  Serious: Yes (Other)
  Sender: ROCHE
  Company Number: CN-ROCHE-10000297978

PATIENT

DRUGS (5)
  1. ATEZOLIZUMAB [Suspect]
     Active Substance: ATEZOLIZUMAB
     Indication: Neoplasm malignant
     Route: 065
  2. ADEBRELIMAB [Suspect]
     Active Substance: ADEBRELIMAB
     Indication: Neoplasm malignant
     Route: 065
  3. SUGEMALIMAB [Suspect]
     Active Substance: SUGEMALIMAB
     Indication: Neoplasm malignant
     Route: 065
  4. DURVALUMAB [Suspect]
     Active Substance: DURVALUMAB
     Indication: Neoplasm malignant
     Route: 065
  5. ENVAFOLIMAB [Suspect]
     Active Substance: ENVAFOLIMAB
     Indication: Neoplasm malignant
     Route: 065

REACTIONS (14)
  - Skin disorder [Unknown]
  - Cardiovascular disorder [Unknown]
  - Musculoskeletal disorder [Unknown]
  - Gastrointestinal disorder [Unknown]
  - Endocrine disorder [Unknown]
  - Pancreatic disorder [Unknown]
  - Liver disorder [Unknown]
  - Infusion related reaction [Unknown]
  - Renal disorder [Unknown]
  - Oral disorder [Unknown]
  - Oedema [Unknown]
  - Fatigue [Unknown]
  - Blood disorder [Unknown]
  - Lung disorder [Unknown]
